FAERS Safety Report 5603808-X (Version None)
Quarter: 2008Q1

REPORT INFORMATION
  Report Type: 
  Country: None (occurrence: None)
  Receive Date: 20080122
  Receipt Date: 20080109
  Transmission Date: 20080703
  Serious: Yes (Other)
  Sender: FDA-Public Use
  Company Number: 08-000049

PATIENT
  Age: 15 Year
  Sex: Female
  Weight: 59 kg

DRUGS (4)
  1. LOESTRIN 24 FE [Suspect]
     Indication: MENORRHAGIA
     Dosage: 20/1000 UG, QD, ORAL
     Route: 048
     Dates: start: 20071001
  2. ZARONTIN [Concomitant]
  3. CONCERTA [Concomitant]
  4. ANTI-ACNE PREPARATIONS FOR TOPICAL USE [Concomitant]

REACTIONS (3)
  - BREAST ABSCESS [None]
  - BREAST CELLULITIS [None]
  - BREAST PAIN [None]
